FAERS Safety Report 9530535 (Version 1)
Quarter: 2013Q3

REPORT INFORMATION
  Report Type: Spontaneous
  Country: DE (occurrence: DE)
  Receive Date: 20130918
  Receipt Date: 20130918
  Transmission Date: 20140515
  Serious: Yes (Other)
  Sender: FDA-Public Use
  Company Number: DE-AMGEN-DEUSP2013065590

PATIENT
  Age: 43 Year
  Sex: Female

DRUGS (3)
  1. IBUPROFEN [Concomitant]
     Dosage: UNK
  2. ENBREL [Suspect]
     Indication: RHEUMATOID ARTHRITIS
     Dosage: 25 MG, 2X/WEEK
     Route: 065
     Dates: start: 20130308, end: 201306
  3. PREDNISOLON                        /00016201/ [Concomitant]
     Dosage: 10 MG, 1X/DAY

REACTIONS (1)
  - Ovarian cancer [Unknown]
